FAERS Safety Report 5260480-9 (Version None)
Quarter: 2007Q1

REPORT INFORMATION
  Report Type: 
  Country: None (occurrence: None)
  Receive Date: 20070309
  Receipt Date: 20060928
  Transmission Date: 20070707
  Serious: No
  Sender: FDA-Public Use
  Company Number: US-GLAXOSMITHKLINE-A0621600A

PATIENT

DRUGS (2)
  1. NICORETTE [Suspect]
     Indication: DRUG USE FOR UNKNOWN INDICATION
  2. NICODERM CQ [Suspect]
     Indication: DRUG USE FOR UNKNOWN INDICATION
     Dates: start: 20060920

REACTIONS (3)
  - INTENTIONAL DRUG MISUSE [None]
  - LARYNGITIS [None]
  - PHARYNGOLARYNGEAL PAIN [None]
